FAERS Safety Report 25915760 (Version 2)
Quarter: 2025Q4

REPORT INFORMATION
  Report Type: Report from Study
  Country: US (occurrence: US)
  Receive Date: 20251013
  Receipt Date: 20251214
  Transmission Date: 20260118
  Serious: No
  Sender: PFIZER
  Company Number: US-PFIZER INC-202500199938

PATIENT
  Age: 34 Year
  Sex: Female

DRUGS (2)
  1. CIBINQO [Suspect]
     Active Substance: ABROCITINIB
     Indication: Dermatitis atopic
     Dosage: 100 MG, DAILY, 1 PILL DAILY PM
     Route: 048
  2. CIBINQO [Suspect]
     Active Substance: ABROCITINIB
     Dosage: 50 MG, 1X/DAY (1/2 PILL)
     Route: 048

REACTIONS (9)
  - Abdominal discomfort [Unknown]
  - Alopecia [Recovering/Resolving]
  - Weight increased [Unknown]
  - Menstruation irregular [Unknown]
  - Hot flush [Unknown]
  - Hyperhidrosis [Unknown]
  - Acne [Recovered/Resolved]
  - Wrong technique in product usage process [Unknown]
  - Off label use [Unknown]
